FAERS Safety Report 19435852 (Version 1)
Quarter: 2021Q2

REPORT INFORMATION
  Report Type: Spontaneous
  Country: GB (occurrence: GB)
  Receive Date: 20210618
  Receipt Date: 20210618
  Transmission Date: 20210717
  Serious: Yes (Other)
  Sender: FDA-Public Use
  Company Number: GB-TEVA-2021-GB-1923116

PATIENT
  Age: 54 Year
  Sex: Male

DRUGS (84)
  1. OMEPRAZOLE. [Suspect]
     Active Substance: OMEPRAZOLE
     Indication: ILL-DEFINED DISORDER
  2. CALCIUM GLUCONATE. [Suspect]
     Active Substance: CALCIUM GLUCONATE
     Indication: ILL-DEFINED DISORDER
  3. CLEXANE [Suspect]
     Active Substance: ENOXAPARIN SODIUM
     Indication: ILL-DEFINED DISORDER
  4. HEPARIN CALCIUM [Suspect]
     Active Substance: HEPARIN CALCIUM
     Indication: ILL-DEFINED DISORDER
     Route: 065
  5. NORADRENALINE [Suspect]
     Active Substance: NOREPINEPHRINE
     Indication: ILL-DEFINED DISORDER
  6. PROPOFOL. [Suspect]
     Active Substance: PROPOFOL
     Indication: PNEUMONIA
     Route: 042
     Dates: start: 2006
  7. SILVER SULPHADIAZINE [Suspect]
     Active Substance: SILVER SULFADIAZINE
     Indication: ILL-DEFINED DISORDER
  8. TINZAPARIN [Suspect]
     Active Substance: TINZAPARIN
     Indication: ILL-DEFINED DISORDER
     Dosage: 3500 MICROGRAM DAILY;
     Route: 065
  9. AMOXICILLIN. [Suspect]
     Active Substance: AMOXICILLIN
     Indication: ILL-DEFINED DISORDER
     Dosage: 3 GRAM DAILY; 1G THREE TIMES DAILY,
     Route: 042
     Dates: start: 20060913
  10. CO?AMOXICLAV [Concomitant]
     Active Substance: AMOXICILLIN\CLAVULANATE POTASSIUM
  11. VANCOMYCIN [Concomitant]
     Active Substance: VANCOMYCIN
  12. CHLORPHENAMINE [Suspect]
     Active Substance: CHLORPHENIRAMINE MALEATE
     Indication: PNEUMONIA
     Dosage: 40 MILLIGRAM DAILY;
     Route: 065
     Dates: start: 2006
  13. LACTULOSE. [Suspect]
     Active Substance: LACTULOSE
     Indication: ILL-DEFINED DISORDER
     Dosage: 10 ML
     Route: 065
     Dates: start: 2006
  14. HUMAN ACTRAPID [Suspect]
     Active Substance: INSULIN HUMAN
     Indication: PNEUMONIA
  15. FUROSEMIDE. [Suspect]
     Active Substance: FUROSEMIDE
     Indication: PNEUMONIA
     Dosage: 40 MILLIGRAM DAILY; IV 20 MG TWICE A DAY
     Route: 042
     Dates: start: 2006
  16. AQUASEPT [Suspect]
     Active Substance: TRICLOSAN
     Indication: ILL-DEFINED DISORDER
  17. MAGNESIUM SULFATE. [Suspect]
     Active Substance: MAGNESIUM SULFATE
     Indication: PNEUMONIA
  18. ROCEPHIN [Suspect]
     Active Substance: CEFTRIAXONE SODIUM
     Indication: ILL-DEFINED DISORDER
     Dosage: 2 GRAM
     Route: 042
     Dates: start: 2006
  19. THIAMIN [Suspect]
     Active Substance: THIAMINE
     Indication: ILL-DEFINED DISORDER
  20. CIPROFLOXACIN. [Concomitant]
     Active Substance: CIPROFLOXACIN
  21. OMEPRAZOLE. [Suspect]
     Active Substance: OMEPRAZOLE
     Indication: PNEUMONIA
     Dosage: 40 MG
     Route: 042
  22. ALFENTANIL. [Suspect]
     Active Substance: ALFENTANIL
     Indication: ILL-DEFINED DISORDER
     Route: 042
     Dates: start: 2006
  23. AQUASEPT [Suspect]
     Active Substance: TRICLOSAN
     Indication: PNEUMONIA
     Route: 065
     Dates: start: 2006
  24. NORADRENALINE [Suspect]
     Active Substance: NOREPINEPHRINE
     Indication: PNEUMONIA
     Route: 065
     Dates: start: 2006
  25. PARACETAMOL [Suspect]
     Active Substance: ACETAMINOPHEN
     Indication: ILL-DEFINED DISORDER
     Route: 065
     Dates: start: 2006
  26. PIRITON [Suspect]
     Active Substance: CHLORPHENIRAMINE MALEATE
     Indication: ILL-DEFINED DISORDER
  27. POTASSIUM CANRENOATE [Suspect]
     Active Substance: CANRENOATE POTASSIUM
     Indication: ILL-DEFINED DISORDER
     Route: 065
  28. PROPOFOL. [Suspect]
     Active Substance: PROPOFOL
     Indication: ILL-DEFINED DISORDER
  29. SODIUM CHLORIDE. [Suspect]
     Active Substance: SODIUM CHLORIDE
     Indication: PNEUMONIA
     Dosage: .9 PERCENT DAILY;
     Route: 042
     Dates: start: 2006
  30. SODIUM CHLORIDE. [Suspect]
     Active Substance: SODIUM CHLORIDE
     Indication: ILL-DEFINED DISORDER
  31. THIAMIN [Suspect]
     Active Substance: THIAMINE
     Indication: PNEUMONIA
     Dosage: 100 MILLIGRAM DAILY;
     Route: 048
  32. ERYTHROMYCIN. [Concomitant]
     Active Substance: ERYTHROMYCIN
  33. TAZOCIN [Concomitant]
     Active Substance: PIPERACILLIN SODIUM\TAZOBACTAM SODIUM
  34. ZOPICLONE [Concomitant]
     Active Substance: ZOPICLONE
  35. ASPIRIN KOMPLEX [Concomitant]
  36. LACTULOSE. [Suspect]
     Active Substance: LACTULOSE
     Indication: PNEUMONIA
  37. HUMAN ACTRAPID [Suspect]
     Active Substance: INSULIN HUMAN
     Indication: TOXIC EPIDERMAL NECROLYSIS
  38. CALCIUM GLUCONATE. [Suspect]
     Active Substance: CALCIUM GLUCONATE
     Indication: PNEUMONIA
     Dosage: 10 ML
     Route: 042
     Dates: start: 2006
  39. MAGNESIUM SULFATE. [Suspect]
     Active Substance: MAGNESIUM SULFATE
     Indication: ILL-DEFINED DISORDER
     Dosage: 10ML/50 PERCENT 8MMOLS/50 MLS
     Route: 065
     Dates: start: 2006
  40. ROCEPHIN [Suspect]
     Active Substance: CEFTRIAXONE SODIUM
     Indication: PNEUMONIA
  41. FLUCONAZOLE. [Suspect]
     Active Substance: FLUCONAZOLE
     Indication: ILL-DEFINED DISORDER
     Dosage: 200 MILLIGRAM DAILY;
     Route: 042
     Dates: start: 2006
  42. SALBUTAMOL [Suspect]
     Active Substance: ALBUTEROL
     Indication: PNEUMONIA
     Dosage: 1 DF
     Route: 065
     Dates: start: 2006
  43. FUROSEMIDE. [Suspect]
     Active Substance: FUROSEMIDE
     Indication: ILL-DEFINED DISORDER
     Dosage: 20 MILLIGRAM DAILY;
     Route: 048
     Dates: start: 2006
  44. BACTROBAN [Suspect]
     Active Substance: MUPIROCIN\MUPIROCIN CALCIUM
     Indication: PNEUMONIA
  45. CALCIUM CHLORIDE. [Suspect]
     Active Substance: CALCIUM CHLORIDE
     Indication: PNEUMONIA
  46. CLEXANE [Suspect]
     Active Substance: ENOXAPARIN SODIUM
     Indication: PNEUMONIA
     Dosage: 20 MILLIGRAM DAILY;
     Route: 058
     Dates: start: 2006
  47. FRAGMIN [Suspect]
     Active Substance: DALTEPARIN SODIUM
     Indication: ILL-DEFINED DISORDER
     Dosage: 2500 IU (INTERNATIONAL UNIT) DAILY;
     Route: 058
  48. PIRITON [Suspect]
     Active Substance: CHLORPHENIRAMINE MALEATE
     Indication: PNEUMONIA
     Dosage: 40 MILLIGRAM DAILY; 10 MG FOUR TIMES DAILY
     Route: 042
     Dates: start: 2006
  49. SIMVASTATIN. [Suspect]
     Active Substance: SIMVASTATIN
     Indication: ILL-DEFINED DISORDER
     Dosage: 40 MILLIGRAM DAILY;
     Route: 042
     Dates: start: 2006
  50. SIMVASTATIN. [Suspect]
     Active Substance: SIMVASTATIN
     Indication: PNEUMONIA
  51. ATROVENT [Concomitant]
     Active Substance: IPRATROPIUM BROMIDE
  52. MIDODRINE [Concomitant]
     Active Substance: MIDODRINE
  53. AMOXICILLIN. [Suspect]
     Active Substance: AMOXICILLIN
     Indication: PNEUMONIA
     Dosage: 750 MILLIGRAM DAILY; ONCE IN A 8 HOURS
     Route: 048
     Dates: start: 20060913
  54. LORAZEPAM. [Suspect]
     Active Substance: LORAZEPAM
     Indication: ILL-DEFINED DISORDER
  55. ALFENTANIL. [Suspect]
     Active Substance: ALFENTANIL
     Indication: PNEUMONIA
  56. CALCIUM CHLORIDE. [Suspect]
     Active Substance: CALCIUM CHLORIDE
     Indication: ILL-DEFINED DISORDER
     Route: 065
     Dates: start: 2006
  57. HEPARIN SODIUM. [Suspect]
     Active Substance: HEPARIN SODIUM
     Indication: PRODUCT USED FOR UNKNOWN INDICATION
     Dosage: 3500 MICROGRAM
     Route: 065
  58. HYDROCORTISONE. [Suspect]
     Active Substance: HYDROCORTISONE
     Indication: ILL-DEFINED DISORDER
     Dosage: 100 MILLIGRAM DAILY; HYDROCORTISONE SODIUM SUCCINATE
     Route: 042
     Dates: start: 2006
  59. PARACETAMOL [Suspect]
     Active Substance: ACETAMINOPHEN
     Indication: PNEUMONIA
  60. POTASSIUM CHLORIDE. [Suspect]
     Active Substance: POTASSIUM CHLORIDE
     Indication: ILL-DEFINED DISORDER
  61. SODIUM BICARBONATE. [Suspect]
     Active Substance: SODIUM BICARBONATE
     Indication: PNEUMONIA
  62. VITAMIN B SUBSTANCES [Suspect]
     Active Substance: VITAMIN B
     Indication: ILL-DEFINED DISORDER
     Route: 065
  63. ASPIRIN. [Concomitant]
     Active Substance: ASPIRIN
  64. FLUCONAZOLE. [Suspect]
     Active Substance: FLUCONAZOLE
     Indication: PNEUMONIA
  65. SALBUTAMOL [Suspect]
     Active Substance: ALBUTEROL
     Indication: ILL-DEFINED DISORDER
  66. HUMAN ACTRAPID [Suspect]
     Active Substance: INSULIN HUMAN
     Indication: DIABETES MELLITUS
     Dosage: AT A DOSE OF 50 UNITS/50ML
     Route: 042
     Dates: start: 2006
  67. CITRIC ACID ANHYDROUS [Suspect]
     Active Substance: ANHYDROUS CITRIC ACID
     Indication: PNEUMONIA
     Dosage: 100 MILLIGRAM DAILY;
     Route: 065
     Dates: start: 2006
  68. BACTROBAN [Suspect]
     Active Substance: MUPIROCIN\MUPIROCIN CALCIUM
     Indication: ILL-DEFINED DISORDER
     Route: 065
     Dates: start: 2006
  69. DOBUTAMINE [Suspect]
     Active Substance: DOBUTAMINE HYDROCHLORIDE
     Indication: PNEUMONIA
  70. FRAGMIN [Suspect]
     Active Substance: DALTEPARIN SODIUM
     Indication: PNEUMONIA
  71. SODIUM BICARBONATE. [Suspect]
     Active Substance: SODIUM BICARBONATE
     Indication: ILL-DEFINED DISORDER
     Dosage: 2400 MILLIGRAM DAILY;
     Route: 042
     Dates: start: 2006
  72. LANSOPRAZOLE. [Suspect]
     Active Substance: LANSOPRAZOLE
     Indication: ILL-DEFINED DISORDER
     Dosage: 30 MILLIGRAM DAILY;
     Route: 065
     Dates: start: 2006
  73. LORAZEPAM. [Suspect]
     Active Substance: LORAZEPAM
     Indication: PNEUMONIA
     Dosage: AT A DOSE OF 1?2 MILLIGRAM ONCE ONLY VIA UNKNOWN ROUTE
     Route: 065
     Dates: start: 2006
  74. CITRIC ACID ANHYDROUS [Suspect]
     Active Substance: ANHYDROUS CITRIC ACID
     Indication: ILL-DEFINED DISORDER
  75. DOBUTAMINE [Suspect]
     Active Substance: DOBUTAMINE HYDROCHLORIDE
     Indication: ILL-DEFINED DISORDER
     Route: 065
     Dates: start: 2006
  76. PHYTOMENADIONE [Suspect]
     Active Substance: PHYTONADIONE
     Indication: ILL-DEFINED DISORDER
     Route: 065
     Dates: start: 2006
  77. PHYTOMENADIONE [Suspect]
     Active Substance: PHYTONADIONE
     Indication: PNEUMONIA
  78. POTASSIUM CHLORIDE. [Suspect]
     Active Substance: POTASSIUM CHLORIDE
     Indication: ILL-DEFINED DISORDER
     Dosage: 6 DF
     Route: 065
     Dates: start: 2006
  79. POTASSIUM CHLORIDE. [Suspect]
     Active Substance: POTASSIUM CHLORIDE
     Indication: PNEUMONIA
     Route: 065
     Dates: start: 2006
  80. POTASSIUM PHOSPHATE [Suspect]
     Active Substance: POTASSIUM PHOSPHATE
     Indication: ILL-DEFINED DISORDER
     Route: 065
  81. SILVER SULPHADIAZINE [Suspect]
     Active Substance: SILVER SULFADIAZINE
     Indication: PNEUMONIA
     Route: 061
     Dates: start: 2006
  82. TINZAPARIN [Suspect]
     Active Substance: TINZAPARIN
     Indication: PNEUMONIA
  83. METOCLOPRAMIDE. [Concomitant]
     Active Substance: METOCLOPRAMIDE
  84. PANTOPRAZOLE [Concomitant]
     Active Substance: PANTOPRAZOLE

REACTIONS (1)
  - Toxic epidermal necrolysis [Unknown]

NARRATIVE: CASE EVENT DATE: 2006
